FAERS Safety Report 10238622 (Version 1)
Quarter: 2014Q2

REPORT INFORMATION
  Report Type: Spontaneous
  Country: US (occurrence: None)
  Receive Date: 20140613
  Receipt Date: 20140613
  Transmission Date: 20141212
  Serious: No
  Sender: FDA-Public Use
  Company Number: None

PATIENT
  Age: 52 Year
  Sex: Female

DRUGS (8)
  1. SOLVALDI [Suspect]
     Indication: HEPATITIS C
     Route: 048
  2. RIBAVIRIN [Suspect]
     Indication: HEPATITIS C
     Route: 048
  3. BACLOFEN [Concomitant]
  4. CYMBALTA [Concomitant]
  5. KEPPRA [Concomitant]
  6. SEROQUEL [Concomitant]
  7. LACTULOSE [Concomitant]
  8. ZOFRAN [Concomitant]

REACTIONS (6)
  - Nausea [None]
  - Vomiting [None]
  - Decreased appetite [None]
  - Diarrhoea [None]
  - Constipation [None]
  - Weight decreased [None]
